FAERS Safety Report 5566423-2 (Version None)
Quarter: 2007Q4

REPORT INFORMATION
  Report Type: 
  Country: None (occurrence: None)
  Receive Date: 20071219
  Receipt Date: 20071207
  Transmission Date: 20080405
  Serious: Yes (Life-Threatening, Other)
  Sender: FDA-Public Use
  Company Number: FR-WYE-H01611507

PATIENT
  Sex: Female

DRUGS (7)
  1. EUPANTOL [Suspect]
     Route: 048
     Dates: start: 20070925
  2. STILNOX [Suspect]
     Route: 048
     Dates: start: 20070925
  3. EFFEXOR [Concomitant]
     Dosage: UNKNOWN
  4. TRANSIPEG [Suspect]
     Route: 048
     Dates: start: 20070925, end: 20071107
  5. IXEL [Suspect]
     Route: 048
     Dates: start: 20071105
  6. BONIVA [Suspect]
     Route: 048
     Dates: start: 20070619, end: 20070925
  7. URBANYL [Suspect]
     Route: 048
     Dates: start: 20071105

REACTIONS (4)
  - CONVULSION [None]
  - HYPERTENSION [None]
  - OESOPHAGEAL RUPTURE [None]
  - PNEUMOMEDIASTINUM [None]
